FAERS Safety Report 21065612 (Version 7)
Quarter: 2023Q1

REPORT INFORMATION
  Report Type: Report from Study
  Country: MX (occurrence: MX)
  Receive Date: 20220711
  Receipt Date: 20230320
  Transmission Date: 20230418
  Serious: Yes (Hospitalization, Disabling, Other)
  Sender: FDA-Public Use
  Company Number: MX-002147023-NVSC2022MX134467

PATIENT

DRUGS (3)
  1. RUXOLITINIB [Suspect]
     Active Substance: RUXOLITINIB
     Indication: Primary myelofibrosis
     Dosage: UNK
     Route: 048
     Dates: start: 2020
  2. RUXOLITINIB [Suspect]
     Active Substance: RUXOLITINIB
     Indication: Polycythaemia vera
     Dosage: UNK (STARTED A MONTH AGO)
     Route: 048
     Dates: end: 20221004
  3. RUXOLITINIB [Suspect]
     Active Substance: RUXOLITINIB
     Indication: Polycythaemia vera
     Dosage: UNK
     Route: 048

REACTIONS (19)
  - Renal injury [Unknown]
  - Feeling abnormal [Unknown]
  - Asthenia [Unknown]
  - General physical health deterioration [Unknown]
  - Discouragement [Unknown]
  - Malaise [Unknown]
  - Pyrexia [Unknown]
  - Infection [Unknown]
  - Kidney infection [Unknown]
  - Haemoglobin decreased [Not Recovered/Not Resolved]
  - Speech disorder [Unknown]
  - Fall [Unknown]
  - Illness [Unknown]
  - Mobility decreased [Unknown]
  - Weight increased [Unknown]
  - Product availability issue [Unknown]
  - Ill-defined disorder [Unknown]
  - Infection susceptibility increased [Unknown]
  - Decreased appetite [Not Recovered/Not Resolved]

NARRATIVE: CASE EVENT DATE: 20220101
